FAERS Safety Report 8609807-8 (Version None)
Quarter: 2012Q3

REPORT INFORMATION
  Report Type: 
  Country: None (occurrence: None)
  Receive Date: 20120821
  Receipt Date: 20120817
  Transmission Date: 20120928
  Serious: Yes (Other)
  Sender: FDA-Public Use
  Company Number: BR-ABBOTT-12P-020-0969954-00

PATIENT
  Sex: Female
  Weight: 56.5 kg

DRUGS (4)
  1. HUMIRA [Suspect]
     Indication: CROHN'S DISEASE
     Route: 058
     Dates: start: 20101001
  2. HUMIRA [Suspect]
     Route: 058
     Dates: start: 20100901, end: 20100901
  3. CELESTAMINE TAB [Concomitant]
     Indication: INJECTION RELATED REACTION
     Dosage: 1 TABLET IN THE DAYS OF HUMIRA INJECTIONS
     Dates: start: 20120401
  4. HUMIRA [Suspect]
     Route: 058
     Dates: start: 20100901, end: 20100901

REACTIONS (8)
  - ABORTION SPONTANEOUS [None]
  - INTESTINAL PERFORATION [None]
  - INJECTION SITE INDURATION [None]
  - HYPOTHYROIDISM [None]
  - PAIN IN EXTREMITY [None]
  - INJECTION SITE ERYTHEMA [None]
  - INJECTION SITE SWELLING [None]
  - INJECTION SITE WARMTH [None]
